FAERS Safety Report 11651716 (Version 1)
Quarter: 2015Q4

REPORT INFORMATION
  Report Type: Spontaneous
  Country: US (occurrence: None)
  Receive Date: 20151021
  Receipt Date: 20151021
  Transmission Date: 20160304
  Serious: Yes (Other)
  Sender: FDA-Public Use
  Company Number: None

PATIENT
  Age: 65 Year
  Sex: Female
  Weight: 95.71 kg

DRUGS (7)
  1. OMEPRAZOLE. [Concomitant]
     Active Substance: OMEPRAZOLE
  2. FOSINOPRIL SODIUM. [Suspect]
     Active Substance: FOSINOPRIL SODIUM
     Indication: HYPERTENSION
     Dosage: 20 MG 1 PILL 1 DAILY BY MOUTH
     Route: 048
     Dates: start: 20150907, end: 20151002
  3. AMLODIPINE [Concomitant]
     Active Substance: AMLODIPINE BESYLATE
  4. TRIAMTERENE W/HCTZ [Concomitant]
  5. VITAMIN D [Concomitant]
     Active Substance: CHOLECALCIFEROL
  6. LEVOTHROID [Concomitant]
     Active Substance: LEVOTHYROXINE SODIUM
  7. MULTIVITAMIN [Concomitant]
     Active Substance: VITAMINS

REACTIONS (1)
  - Angioedema [None]

NARRATIVE: CASE EVENT DATE: 20151002
